FAERS Safety Report 4389487-0 (Version None)
Quarter: 2004Q2

REPORT INFORMATION
  Report Type: 
  Country: None (occurrence: None)
  Receive Date: 20040628
  Receipt Date: 20040615
  Transmission Date: 20050107
  Serious: Yes (Hospitalization)
  Sender: FDA-Public Use
  Company Number: FR-JNJFOC-20040604061

PATIENT
  Age: 86 Year
  Sex: Female

DRUGS (6)
  1. HALDOL [Suspect]
     Dosage: ORAL
     Route: 048
  2. CLOPIXOL (ZUCLOPENTHIXOL DECANOATE) [Suspect]
     Dosage: ORAL
     Route: 048
  3. ULTRA-LEVURE (SACCHAROMYCES BOULARDII) [Concomitant]
  4. DAFLON (DIOSMIN) [Concomitant]
  5. DOLIPRANE (PARACETAMOL) [Concomitant]
  6. HEPT-A-MYL (HEPTAMINOL HYDROCHLORIDE) [Concomitant]

REACTIONS (8)
  - BLOOD PRESSURE SYSTOLIC INCREASED [None]
  - CAROTID ARTERY ATHEROMA [None]
  - DRUG INTERACTION [None]
  - FALL [None]
  - LEUKOARAIOSIS [None]
  - QRS AXIS ABNORMAL [None]
  - THROMBOCYTOPENIA [None]
  - VENTRICULAR HYPERTROPHY [None]
